FAERS Safety Report 19238715 (Version 1)
Quarter: 2021Q2

REPORT INFORMATION
  Report Type: Spontaneous
  Country: US (occurrence: US)
  Receive Date: 20210510
  Receipt Date: 20210510
  Transmission Date: 20210717
  Serious: No
  Sender: FDA-Public Use
  Company Number: US-AMNEAL PHARMACEUTICALS-2021-AMRX-00974

PATIENT
  Sex: Female

DRUGS (2)
  1. PREGABALIN. [Suspect]
     Active Substance: PREGABALIN
     Indication: PRODUCT USED FOR UNKNOWN INDICATION
     Dosage: 75 MILLIGRAM
     Route: 065
  2. PREGABALIN. [Suspect]
     Active Substance: PREGABALIN
     Dosage: 100 MILLIGRAM
     Route: 065

REACTIONS (2)
  - Disturbance in attention [Unknown]
  - Coordination abnormal [Unknown]

NARRATIVE: CASE EVENT DATE: 202005
